FAERS Safety Report 10205978 (Version 1)
Quarter: 2014Q2

REPORT INFORMATION
  Report Type: Spontaneous
  Country: US (occurrence: None)
  Receive Date: 20140527
  Receipt Date: 20140527
  Transmission Date: 20141212
  Serious: Yes (Hospitalization)
  Sender: FDA-Public Use
  Company Number: None

PATIENT
  Age: 22 Year
  Sex: Male

DRUGS (4)
  1. VANCOMYCIN [Suspect]
     Indication: OSTEOMYELITIS
     Route: 042
     Dates: start: 20120211, end: 20120220
  2. HYDROMORPHONE [Concomitant]
  3. DOCUSATE [Concomitant]
  4. SENNA [Concomitant]

REACTIONS (3)
  - Rash maculo-papular [None]
  - Erythema [None]
  - White blood cell count increased [None]
